FAERS Safety Report 7728189-7 (Version None)
Quarter: 2011Q3

REPORT INFORMATION
  Report Type: 
  Country: None (occurrence: None)
  Receive Date: 20110905
  Receipt Date: 20110825
  Transmission Date: 20111222
  Serious: Yes (Hospitalization)
  Sender: FDA-Public Use
  Company Number: PHHY2011US43426

PATIENT
  Sex: Male

DRUGS (1)
  1. GLEEVEC [Suspect]
     Indication: CHRONIC MYELOID LEUKAEMIA
     Dosage: 400 MG, ONE TABLET DAILY
     Route: 048
     Dates: start: 20110421

REACTIONS (6)
  - VOMITING [None]
  - ASTHENIA [None]
  - FATIGUE [None]
  - BRONCHITIS [None]
  - NAUSEA [None]
  - DIARRHOEA [None]
